FAERS Safety Report 5227680-5 (Version None)
Quarter: 2007Q1

REPORT INFORMATION
  Report Type: 
  Country: None (occurrence: None)
  Receive Date: 20070202
  Receipt Date: 20070125
  Transmission Date: 20070707
  Serious: Yes (Life-Threatening, Hospitalization)
  Sender: FDA-Public Use
  Company Number: DE-ABBOTT-07P-062-0357186-00

PATIENT
  Sex: Female
  Weight: 65 kg

DRUGS (4)
  1. HUMIRA [Suspect]
     Indication: RHEUMATOID ARTHRITIS
     Route: 058
     Dates: start: 20030301, end: 20030401
  2. ETANERCEPT [Suspect]
     Indication: RHEUMATOID ARTHRITIS
     Route: 058
     Dates: end: 20061201
  3. ETANERCEPT [Suspect]
     Route: 058
     Dates: start: 20010101, end: 20030201
  4. ACETAMINOPHEN [Concomitant]
     Indication: RHEUMATOID ARTHRITIS

REACTIONS (1)
  - LIPOSARCOMA [None]
